FAERS Safety Report 24964075 (Version 3)
Quarter: 2025Q2

REPORT INFORMATION
  Report Type: Report from Study
  Country: JP (occurrence: JP)
  Receive Date: 20250213
  Receipt Date: 20250623
  Transmission Date: 20250717
  Serious: No
  Sender: ROCHE
  Company Number: JP-CHUGAI-2025004066

PATIENT
  Age: 68 Year
  Sex: Male
  Weight: 78.9 kg

DRUGS (1)
  1. TECENTRIQ [Suspect]
     Active Substance: ATEZOLIZUMAB
     Indication: Non-small cell lung cancer
     Route: 042
     Dates: start: 20240306, end: 20241030

REACTIONS (1)
  - Dermatitis psoriasiform [Unknown]

NARRATIVE: CASE EVENT DATE: 20240828
